FAERS Safety Report 16590583 (Version 1)
Quarter: 2019Q3

REPORT INFORMATION
  Report Type: Spontaneous
  Country: US (occurrence: US)
  Receive Date: 20190604
  Receipt Date: 20190604
  Transmission Date: 20191004
  Serious: No
  Sender: FDA-Public Use
  Company Number: None

PATIENT

DRUGS (2)
  1. ATROPINE OPHTHALMIC DROPS ATROPINE SULFATE [Suspect]
     Active Substance: ATROPINE SULFATE
     Route: 047
  2. CYCLOPENTOLATE HCL CYCLOPENTOLATE HYDROCHLORIDE [Suspect]
     Active Substance: CYCLOPENTOLATE HYDROCHLORIDE

REACTIONS (1)
  - Product appearance confusion [None]
